FAERS Safety Report 8540074-X (Version None)
Quarter: 2012Q3

REPORT INFORMATION
  Report Type: 
  Country: None (occurrence: None)
  Receive Date: 20120726
  Receipt Date: 20120717
  Transmission Date: 20120928
  Serious: Yes (Hospitalization)
  Sender: FDA-Public Use
  Company Number: FR-ASTRAZENECA-2012SE51207

PATIENT
  Age: 5911 Day
  Sex: Female

DRUGS (7)
  1. CRESTOR [Suspect]
     Indication: HYPERTRIGLYCERIDAEMIA
     Route: 048
     Dates: start: 20110907, end: 20120411
  2. OROMONE [Concomitant]
     Indication: HYPOPITUITARISM
     Dates: start: 20100726
  3. PHENOXYMETHYL PENICILLIN [Concomitant]
     Indication: RHEUMATIC FEVER
     Dates: start: 20080401
  4. NORDITROPINE [Concomitant]
     Indication: HYPOPITUITARISM
     Dates: start: 20050101
  5. HYDROCORTISONE [Concomitant]
     Indication: HYPOPITUITARISM
     Dates: start: 20050101
  6. LEVOTHYROXINE SODIUM [Concomitant]
     Indication: HYPOPITUITARISM
     Dates: start: 20050101
  7. MINIRINMELT [Concomitant]
     Indication: HYPOPITUITARISM
     Dates: start: 20111219

REACTIONS (3)
  - PAIN [None]
  - RHABDOMYOLYSIS [None]
  - ASTHENIA [None]
